FAERS Safety Report 22858045 (Version 4)
Quarter: 2024Q1

REPORT INFORMATION
  Report Type: Spontaneous
  Country: SE (occurrence: SE)
  Receive Date: 20230824
  Receipt Date: 20240229
  Transmission Date: 20240409
  Serious: Yes (Hospitalization, Other)
  Sender: FDA-Public Use
  Company Number: SE-002147023-NVSC2023SE174063

PATIENT
  Age: 75 Year
  Sex: Male

DRUGS (8)
  1. EXELON [Suspect]
     Active Substance: RIVASTIGMINE TARTRATE
     Indication: Dementia with Lewy bodies
     Dosage: 4.6 MG, QD (1 PATCH)
     Route: 062
     Dates: end: 20230823
  2. EXELON [Suspect]
     Active Substance: RIVASTIGMINE TARTRATE
     Dosage: 4.6 MG, QD (1 PATCH)
     Route: 062
     Dates: start: 20230209, end: 20230213
  3. EXELON [Suspect]
     Active Substance: RIVASTIGMINE TARTRATE
     Dosage: 4.6 MG, QD (1 PATCH)
     Route: 062
     Dates: start: 20230426
  4. EXELON [Suspect]
     Active Substance: RIVASTIGMINE TARTRATE
     Dosage: 4.6 MG, QD (1 PATCH)
     Route: 062
     Dates: end: 20230823
  5. EXELON [Suspect]
     Active Substance: RIVASTIGMINE TARTRATE
     Dosage: UNK
     Route: 062
     Dates: start: 20230630
  6. POLYETHYLENE GLYCOL 3350\POTASSIUM CHLORIDE\SODIUM BICARBONATE\SODIUM [Suspect]
     Active Substance: POLYETHYLENE GLYCOL 3350\POTASSIUM CHLORIDE\SODIUM BICARBONATE\SODIUM CHLORIDE
     Indication: Product used for unknown indication
     Dosage: (POWDER)
     Route: 065
     Dates: start: 20230506, end: 202306
  7. POLYETHYLENE GLYCOL 3350\POTASSIUM CHLORIDE\SODIUM BICARBONATE\SODIUM [Suspect]
     Active Substance: POLYETHYLENE GLYCOL 3350\POTASSIUM CHLORIDE\SODIUM BICARBONATE\SODIUM CHLORIDE
     Indication: Abdominal discomfort
  8. RIVASTIGMINE [Suspect]
     Active Substance: RIVASTIGMINE
     Indication: Dementia with Lewy bodies
     Dosage: UNK (1.6 UNIT NOT REPORTED)
     Route: 065
     Dates: start: 20230227, end: 20230423

REACTIONS (12)
  - Lower limb fracture [Unknown]
  - Cerebral thrombosis [Unknown]
  - Product administered at inappropriate site [Unknown]
  - Product use in unapproved indication [Unknown]
  - Limb discomfort [Unknown]
  - Gastrointestinal disorder [Not Recovered/Not Resolved]
  - Adverse reaction [Unknown]
  - Head injury [Unknown]
  - Confusional state [Unknown]
  - Nightmare [Unknown]
  - Fall [Unknown]
  - Dizziness [Unknown]

NARRATIVE: CASE EVENT DATE: 20230425
